FAERS Safety Report 8966420 (Version 1)
Quarter: 2012Q4

REPORT INFORMATION
  Report Type: Report from Study
  Country: KR (occurrence: KR)
  Receive Date: 20121214
  Receipt Date: 20121214
  Transmission Date: 20130627
  Serious: Yes (Other)
  Sender: FDA-Public Use
  Company Number: KR-GLAXOSMITHKLINE-B0852062A

PATIENT
  Age: 51 Year
  Sex: Male

DRUGS (4)
  1. ADEFOVIR DIPIVOXIL [Suspect]
     Indication: CHRONIC HEPATITIS B
     Route: 065
  2. ADEFOVIR DIPIVOXIL [Suspect]
     Route: 065
  3. LAMIVUDINE-HBV [Suspect]
     Indication: CHRONIC HEPATITIS B
     Dosage: 100MG Per day
  4. LAMIVUDINE-HBV [Suspect]
     Route: 065

REACTIONS (3)
  - No therapeutic response [Unknown]
  - Genotype drug resistance test positive [Unknown]
  - Viral load increased [Unknown]
